FAERS Safety Report 5582093-1 (Version None)
Quarter: 2007Q4

REPORT INFORMATION
  Report Type: 
  Country: None (occurrence: None)
  Receive Date: 20071130
  Receipt Date: 20070606
  Transmission Date: 20080405
  Serious: Yes (Other)
  Sender: FDA-Public Use
  Company Number: WAES 0706USA00991

PATIENT
  Age: 79 Year
  Sex: Male

DRUGS (3)
  1. FOSAMAX [Suspect]
     Indication: BONE DISORDER
     Dosage: PO
     Route: 048
     Dates: start: 20020101
  2. AREDIA [Concomitant]
  3. [THERAPY UNSPECIFIED] [Concomitant]

REACTIONS (4)
  - ANXIETY [None]
  - DEPRESSION [None]
  - OSTEOMYELITIS [None]
  - OSTEONECROSIS [None]
